FAERS Safety Report 9728016 (Version 2)
Quarter: 2014Q1

REPORT INFORMATION
  Report Type: Spontaneous
  Country: GB (occurrence: None)
  Receive Date: 20131127
  Receipt Date: 20140122
  Transmission Date: 20141002
  Serious: Yes (Other)
  Sender: FDA-Public Use
  Company Number: FK201305112

PATIENT
  Age: 66 Year
  Sex: Male

DRUGS (6)
  1. IRINOTECAN [Suspect]
     Indication: COLORECTAL CANCER METASTATIC
  2. OXALIPLATIN [Suspect]
     Indication: COLORECTAL CANCER METASTATIC
  3. CAPECITABINE [Suspect]
     Indication: COLORECTAL CANCER METASTATIC
  4. BEVACIZUMAB [Suspect]
     Indication: COLORECTAL CANCER METASTATIC
     Route: 042
     Dates: start: 20130617, end: 20130724
  5. CALCIUM FOLINATE [Suspect]
     Indication: PRODUCT USED FOR UNKNOWN INDICATION
  6. FLUOROURACIL [Suspect]
     Indication: COLORECTAL CANCER METASTATIC
     Route: 042

REACTIONS (1)
  - Wound complication [None]
